FAERS Safety Report 19972115 (Version 2)
Quarter: 2022Q3

REPORT INFORMATION
  Report Type: Spontaneous
  Country: US (occurrence: US)
  Receive Date: 20211019
  Receipt Date: 20220905
  Transmission Date: 20221027
  Serious: No
  Sender: FDA-Public Use
  Company Number: US-HORIZON THERAPEUTICS-HZN-2021-000931

PATIENT
  Sex: Female

DRUGS (1)
  1. PROCYSBI [Suspect]
     Active Substance: CYSTEAMINE BITARTRATE
     Indication: Amino acid metabolism disorder
     Dosage: 10 CAPSULES EVERY 12 HOURS
     Route: 065
     Dates: start: 201306

REACTIONS (3)
  - Illness [Recovering/Resolving]
  - Product odour abnormal [Unknown]
  - Nausea [Unknown]
